FAERS Safety Report 9921798 (Version 3)
Quarter: 2014Q2

REPORT INFORMATION
  Report Type: Spontaneous
  Country: CA (occurrence: CA)
  Receive Date: 20140225
  Receipt Date: 20140428
  Transmission Date: 20141212
  Serious: Yes (Other)
  Sender: FDA-Public Use
  Company Number: CA-PFIZER INC-2014047697

PATIENT
  Age: 37 Year
  Sex: Female
  Weight: 47.62 kg

DRUGS (4)
  1. PRISTIQ [Suspect]
     Indication: IRRITABILITY
     Dosage: 50 MG, 1X/DAY
     Route: 048
     Dates: start: 20140107, end: 20140211
  2. PRISTIQ [Suspect]
     Indication: ANXIETY
     Dosage: 50 MG, ALTERNATE DAY
     Route: 048
     Dates: start: 20140213, end: 20140218
  3. PRISTIQ [Suspect]
     Indication: STRESS
  4. PRISTIQ [Suspect]
     Indication: DEPRESSION

REACTIONS (21)
  - Delirium [Recovered/Resolved]
  - Bipolar disorder [Unknown]
  - Hallucination, visual [Recovered/Resolved]
  - Agitation [Recovered/Resolved]
  - Anxiety [Recovered/Resolved]
  - Paranoia [Recovered/Resolved]
  - Insomnia [Recovered/Resolved]
  - Speech disorder [Recovered/Resolved]
  - Nausea [Recovered/Resolved]
  - Weight decreased [Recovered/Resolved]
  - Vertigo [Recovered/Resolved]
  - Derealisation [Recovered/Resolved]
  - Negative thoughts [Recovered/Resolved]
  - Feeling abnormal [Recovered/Resolved]
  - Somnolence [Recovered/Resolved]
  - Dry mouth [Recovered/Resolved]
  - Dysgeusia [Recovered/Resolved]
  - Decreased appetite [Recovered/Resolved]
  - Hot flush [Recovered/Resolved]
  - Nervousness [Recovering/Resolving]
  - Pressure of speech [Recovering/Resolving]
